FAERS Safety Report 7919604-4 (Version None)
Quarter: 2011Q4

REPORT INFORMATION
  Report Type: 
  Country: None (occurrence: None)
  Receive Date: 20111117
  Receipt Date: 20111107
  Transmission Date: 20120403
  Serious: Yes (Hospitalization, Other)
  Sender: FDA-Public Use
  Company Number: CA-JNJFOC-20110710064

PATIENT
  Sex: Female
  Weight: 68.04 kg

DRUGS (4)
  1. PERINDOPRIL ERBUMINE [Concomitant]
     Indication: BLOOD PRESSURE
     Route: 048
     Dates: start: 20040101
  2. REMICADE [Suspect]
     Indication: COLITIS ULCERATIVE
     Route: 042
     Dates: start: 20091001
  3. IMURAN [Concomitant]
     Indication: COLITIS ULCERATIVE
     Dosage: STRENGTH 50 MG
     Route: 048
     Dates: start: 19980101
  4. DIOVAN [Concomitant]
     Indication: BLOOD PRESSURE
     Route: 048
     Dates: start: 20040101

REACTIONS (6)
  - SKIN DISORDER [None]
  - FATIGUE [None]
  - BREAST CANCER METASTATIC [None]
  - IMPAIRED HEALING [None]
  - INCISION SITE OEDEMA [None]
  - INCISION SITE HAEMORRHAGE [None]
